FAERS Safety Report 25753545 (Version 1)
Quarter: 2025Q3

REPORT INFORMATION
  Report Type: Spontaneous
  Country: GB (occurrence: GB)
  Receive Date: 20250903
  Receipt Date: 20250903
  Transmission Date: 20251021
  Serious: Yes (Other)
  Sender: SANDOZ
  Company Number: None

PATIENT
  Age: 66 Year
  Sex: Female
  Weight: 72 kg

DRUGS (8)
  1. EZETIMIBE [Suspect]
     Active Substance: EZETIMIBE
     Indication: Ill-defined disorder
     Route: 065
     Dates: start: 20250501
  2. UMECLIDINIUM BROMIDE\VILANTEROL TRIFENATATE [Concomitant]
     Active Substance: UMECLIDINIUM BROMIDE\VILANTEROL TRIFENATATE
     Indication: Ill-defined disorder
     Dosage: INHALE ONE DOSE ONCE A DAY (PLEASE RETURN YOUR ...
     Route: 065
     Dates: start: 20241204
  3. BECLOMETHASONE DIPROPIONATE [Concomitant]
     Active Substance: BECLOMETHASONE DIPROPIONATE
     Indication: Ill-defined disorder
     Dosage: TWO PUFFS TWICE DAILY
     Route: 065
     Dates: start: 20240308
  4. CITALOPRAM [Concomitant]
     Active Substance: CITALOPRAM
     Indication: Ill-defined disorder
     Dosage: ONE TO BE TAKEN DAILY
     Route: 065
     Dates: start: 20240308
  5. COCODAMOL [Concomitant]
     Active Substance: ACETAMINOPHEN\CODEINE PHOSPHATE
     Indication: Ill-defined disorder
     Dosage: ONE TO BE TAKEN FOUR TIMES A DAY
     Route: 065
     Dates: start: 20240308
  6. Easyhaler [Concomitant]
     Indication: Ill-defined disorder
     Route: 065
     Dates: start: 20241204
  7. OMEPRAZOLE [Concomitant]
     Active Substance: OMEPRAZOLE
     Indication: Ill-defined disorder
     Dosage: 1 DF, BID
     Route: 065
     Dates: start: 20240308
  8. ZOPICLONE [Concomitant]
     Active Substance: ZOPICLONE
     Indication: Ill-defined disorder
     Dosage: ONE A NIGHT
     Route: 065
     Dates: start: 20240308

REACTIONS (2)
  - Memory impairment [Recovered/Resolved]
  - Essential tremor [Recovered/Resolved]
